FAERS Safety Report 5378883-0 (Version None)
Quarter: 2007Q3

REPORT INFORMATION
  Report Type: 
  Country: None (occurrence: None)
  Receive Date: 20070705
  Receipt Date: 20070625
  Transmission Date: 20080115
  Serious: Yes (Disabling, Other)
  Sender: FDA-Public Use
  Company Number: GB-AMGEN-UK231817

PATIENT
  Sex: Female
  Weight: 60.6 kg

DRUGS (2)
  1. FILGRASTIM [Suspect]
     Indication: DRUG USE FOR UNKNOWN INDICATION
     Route: 058
  2. DEXAMETHASONE [Concomitant]
     Route: 048
     Dates: start: 20070606, end: 20070609

REACTIONS (6)
  - ANAPHYLACTIC REACTION [None]
  - OEDEMA MOUTH [None]
  - PHARYNGEAL OEDEMA [None]
  - SWOLLEN TONGUE [None]
  - VOMITING [None]
  - WHEEZING [None]
